FAERS Safety Report 7247014-4 (Version None)
Quarter: 2011Q1

REPORT INFORMATION
  Report Type: 
  Country: None (occurrence: None)
  Receive Date: 20110127
  Receipt Date: 20110119
  Transmission Date: 20110831
  Serious: Yes (Other)
  Sender: FDA-Public Use
  Company Number: US-JNJFOC-20100704639

PATIENT
  Sex: Female

DRUGS (2)
  1. LEVAQUIN [Suspect]
     Indication: ARTHRITIS INFECTIVE
     Route: 042
  2. LEVAQUIN [Suspect]
     Indication: INFECTION
     Route: 048

REACTIONS (3)
  - ULNAR TUNNEL SYNDROME [None]
  - TENDONITIS [None]
  - CARPAL TUNNEL SYNDROME [None]
